FAERS Safety Report 5821111-X (Version None)
Quarter: 2008Q3

REPORT INFORMATION
  Report Type: 
  Country: None (occurrence: None)
  Receive Date: 20080724
  Receipt Date: 20080716
  Transmission Date: 20090109
  Serious: Yes (Hospitalization, Disabling, Other)
  Sender: FDA-Public Use
  Company Number: US-WATSON-2008-01545

PATIENT
  Sex: Female
  Weight: 61.224 kg

DRUGS (3)
  1. FENTANYL-50 [Suspect]
     Indication: SPINAL FUSION SURGERY
     Dosage: 1 PATCH, SINGLE
     Route: 062
     Dates: start: 20080123, end: 20080123
  2. FENTANYL-50 [Suspect]
     Dosage: UNK PATCH, SINGLE
     Route: 062
     Dates: start: 20080123, end: 20080123
  3. PAXIL [Concomitant]
     Indication: DRUG USE FOR UNKNOWN INDICATION
     Dosage: UNK, UNKNOWN

REACTIONS (21)
  - AMNESIA [None]
  - APNOEA [None]
  - BALANCE DISORDER [None]
  - BLINDNESS CORTICAL [None]
  - BLOOD PRESSURE IMMEASURABLE [None]
  - COMA [None]
  - CYANOSIS [None]
  - DIPLOPIA [None]
  - DRUG DETOXIFICATION [None]
  - EMBOLIC STROKE [None]
  - GAIT DISTURBANCE [None]
  - HALLUCINATION, VISUAL [None]
  - HEMIPARESIS [None]
  - HYPERHIDROSIS [None]
  - HYPOTENSION [None]
  - HYPOXIA [None]
  - INTRACRANIAL ANEURYSM [None]
  - MYOCARDIAL INFARCTION [None]
  - OEDEMA PERIPHERAL [None]
  - PULSE ABSENT [None]
  - SWELLING FACE [None]
